FAERS Safety Report 6236662-6 (Version None)
Quarter: 2009Q2

REPORT INFORMATION
  Report Type: 
  Country: None (occurrence: None)
  Receive Date: 20090619
  Receipt Date: 20081218
  Transmission Date: 20091009
  Serious: No
  Sender: FDA-Public Use
  Company Number: US-ASTRAZENECA-2008UW28330

PATIENT
  Age: 62 Year
  Sex: Female
  Weight: 95.3 kg

DRUGS (4)
  1. ATACAND [Suspect]
     Indication: HYPERTENSION
     Route: 048
     Dates: start: 20081204
  2. PREVACID [Concomitant]
  3. BAYER ASA [Concomitant]
  4. FISH OIL [Concomitant]

REACTIONS (4)
  - BRONCHITIS [None]
  - NASOPHARYNGITIS [None]
  - OEDEMA PERIPHERAL [None]
  - PAIN IN EXTREMITY [None]
